FAERS Safety Report 16894394 (Version 1)
Quarter: 2019Q4

REPORT INFORMATION
  Report Type: Spontaneous
  Country: US (occurrence: US)
  Receive Date: 20191008
  Receipt Date: 20191008
  Transmission Date: 20200122
  Serious: No
  Sender: FDA-Public Use
  Company Number: US-PFIZER INC-2019428486

PATIENT
  Age: 33 Year
  Sex: Female

DRUGS (12)
  1. LYRICA [Suspect]
     Active Substance: PREGABALIN
     Indication: FLUSHING
  2. GABAPENTIN. [Suspect]
     Active Substance: GABAPENTIN
     Indication: FACIAL PAIN
     Dosage: UNK
  3. GABAPENTIN. [Suspect]
     Active Substance: GABAPENTIN
     Indication: FLUSHING
  4. LYRICA [Suspect]
     Active Substance: PREGABALIN
     Indication: FACIAL PAIN
     Dosage: UNK
  5. CROMOLYN SODIUM. [Suspect]
     Active Substance: CROMOLYN SODIUM
     Indication: FLUSHING
  6. XOLAIR [Suspect]
     Active Substance: OMALIZUMAB
     Indication: FLUSHING
  7. IVERMECTIN. [Suspect]
     Active Substance: IVERMECTIN
     Indication: ROSACEA
  8. GABAPENTIN. [Suspect]
     Active Substance: GABAPENTIN
     Indication: EPILEPSY
  9. XOLAIR [Suspect]
     Active Substance: OMALIZUMAB
     Indication: FACIAL PAIN
     Dosage: UNK
  10. CROMOLYN SODIUM. [Suspect]
     Active Substance: CROMOLYN SODIUM
     Indication: FACIAL PAIN
     Dosage: UNK
  11. IVERMECTIN. [Suspect]
     Active Substance: IVERMECTIN
     Indication: FACIAL PAIN
     Dosage: UNK
  12. IVERMECTIN. [Suspect]
     Active Substance: IVERMECTIN
     Indication: FLUSHING

REACTIONS (1)
  - Drug ineffective [Unknown]
